FAERS Safety Report 4495727-X (Version None)
Quarter: 2004Q4

REPORT INFORMATION
  Report Type: 
  Country: None (occurrence: None)
  Receive Date: 20041108
  Receipt Date: 20041102
  Transmission Date: 20050328
  Serious: Yes (Hospitalization, Other)
  Sender: FDA-Public Use
  Company Number: US-MERCK-0411USA00438

PATIENT
  Age: 79 Year
  Sex: Male

DRUGS (8)
  1. VIOXX [Suspect]
     Indication: ARTHRITIS
     Route: 065
     Dates: start: 20020405, end: 20041028
  2. VIOXX [Suspect]
     Indication: MONARTHRITIS
     Route: 065
     Dates: start: 20020405, end: 20041028
  3. ATENOLOL [Concomitant]
     Route: 065
  4. IMDUR [Concomitant]
     Route: 065
  5. HYDROCHLOROTHIAZIDE [Concomitant]
     Route: 065
  6. PRAVACHOL [Concomitant]
     Route: 065
  7. PLAVIX [Concomitant]
     Route: 065
  8. ASPIRIN [Concomitant]
     Route: 065

REACTIONS (5)
  - BLINDNESS [None]
  - CEREBROVASCULAR ACCIDENT [None]
  - HYPOAESTHESIA [None]
  - THROMBOSIS [None]
  - VISUAL FIELD DEFECT [None]
